FAERS Safety Report 16292116 (Version 2)
Quarter: 2021Q1

REPORT INFORMATION
  Report Type: Spontaneous
  Country: US (occurrence: US)
  Receive Date: 20190509
  Receipt Date: 20210226
  Transmission Date: 20210419
  Serious: Yes (Other)
  Sender: FDA-Public Use
  Company Number: US-ASTRAZENECA-2019SE66917

PATIENT
  Age: 20860 Day
  Sex: Female

DRUGS (65)
  1. PHENERGAN [Concomitant]
     Active Substance: PROMETHAZINE HYDROCHLORIDE
  2. MORPHINE [Concomitant]
     Active Substance: MORPHINE
  3. ALLOPURINOL. [Concomitant]
     Active Substance: ALLOPURINOL
  4. LISINOPRIL. [Concomitant]
     Active Substance: LISINOPRIL
  5. ROCALTROL [Concomitant]
     Active Substance: CALCITRIOL
  6. LAXATIVE [Concomitant]
     Active Substance: UNSPECIFIED INGREDIENT
  7. IMMUNOGLOBULIN IV [Concomitant]
     Active Substance: HUMAN IMMUNOGLOBULIN G
  8. FENTANYL. [Concomitant]
     Active Substance: FENTANYL
  9. ALKA?SELTZER [Concomitant]
     Active Substance: ANHYDROUS CITRIC ACID\ASPIRIN\SODIUM BICARBONATE
  10. MAALOX ANTACID [Concomitant]
     Active Substance: ALUMINUM HYDROXIDE\DIMETHICONE\MAGNESIUM HYDROXIDE
  11. FLAGYL [Concomitant]
     Active Substance: METRONIDAZOLE\METRONIDAZOLE HYDROCHLORIDE
  12. NORCO [Concomitant]
     Active Substance: ACETAMINOPHEN\HYDROCODONE BITARTRATE
  13. MEDROL [Concomitant]
     Active Substance: METHYLPREDNISOLONE
  14. ROBAXIN [Concomitant]
     Active Substance: METHOCARBAMOL
  15. CETIRIZINE [Concomitant]
     Active Substance: CETIRIZINE HYDROCHLORIDE
  16. MULTIVITAMINS [Concomitant]
     Active Substance: VITAMINS
  17. BACTRIM [Concomitant]
     Active Substance: SULFAMETHOXAZOLE\TRIMETHOPRIM
  18. LABETALOL [Concomitant]
     Active Substance: LABETALOL\LABETALOL HYDROCHLORIDE
  19. VITAMIN C [Concomitant]
     Active Substance: ASCORBIC ACID
  20. NITROGLYCERIN. [Concomitant]
     Active Substance: NITROGLYCERIN
  21. DEXILANT [Suspect]
     Active Substance: DEXLANSOPRAZOLE
     Route: 065
     Dates: start: 2009, end: 2016
  22. SIMVASTATIN. [Concomitant]
     Active Substance: SIMVASTATIN
  23. PEPCID [Concomitant]
     Active Substance: FAMOTIDINE
  24. MILK OF MAGNESIA [Concomitant]
     Active Substance: MAGNESIUM HYDROXIDE
  25. AMOXICILLIN. [Concomitant]
     Active Substance: AMOXICILLIN
  26. ASPIRIN. [Concomitant]
     Active Substance: ASPIRIN
  27. CARVEDILOL. [Concomitant]
     Active Substance: CARVEDILOL
  28. SODIUM DOCUSATE [Concomitant]
     Active Substance: DOCUSATE SODIUM
  29. BENZOCAINE?MENTHOL [Concomitant]
  30. KEPPRA [Concomitant]
     Active Substance: LEVETIRACETAM
  31. BENZOCAINE. [Concomitant]
     Active Substance: BENZOCAINE
  32. VIAGRA [Concomitant]
     Active Substance: SILDENAFIL CITRATE
  33. AMICAR [Concomitant]
     Active Substance: AMINOCAPROIC ACID
  34. LASIX [Concomitant]
     Active Substance: FUROSEMIDE
     Indication: CARDIAC DISORDER
  35. CHLOROQUIN [Concomitant]
  36. SODIUM CHLORIDE. [Concomitant]
     Active Substance: SODIUM CHLORIDE
  37. CALCIUM [Concomitant]
     Active Substance: CALCIUM
  38. ZOFRAN [Concomitant]
     Active Substance: ONDANSETRON HYDROCHLORIDE
  39. OXYCONTIN [Concomitant]
     Active Substance: OXYCODONE HYDROCHLORIDE
  40. ACETYLCYSTEINE. [Concomitant]
     Active Substance: ACETYLCYSTEINE
  41. NORVASC [Concomitant]
     Active Substance: AMLODIPINE BESYLATE
  42. NEXIUM [Suspect]
     Active Substance: ESOMEPRAZOLE MAGNESIUM
     Indication: GASTROOESOPHAGEAL REFLUX DISEASE
     Route: 048
     Dates: start: 2001, end: 2016
  43. BENADRYL [Concomitant]
     Active Substance: DIPHENHYDRAMINE HYDROCHLORIDE
  44. TUMS [Concomitant]
     Active Substance: CALCIUM CARBONATE
  45. POTASSIUM CHLORIDE. [Concomitant]
     Active Substance: POTASSIUM CHLORIDE
  46. MECLIZINE [Concomitant]
     Active Substance: MECLIZINE HYDROCHLORIDE
  47. PREMARIN [Concomitant]
     Active Substance: ESTROGENS, CONJUGATED
  48. NEXIUM 24HR [Suspect]
     Active Substance: ESOMEPRAZOLE MAGNESIUM
     Indication: GASTROOESOPHAGEAL REFLUX DISEASE
     Route: 048
     Dates: start: 2014, end: 2016
  49. MYLANTA [Concomitant]
     Active Substance: ALUMINUM HYDROXIDE\DIMETHICONE\MAGNESIUM HYDROXIDE
  50. ROLAIDS [Concomitant]
     Active Substance: CALCIUM CARBONATE\MAGNESIUM HYDROXIDE
  51. HEPARIN [Concomitant]
     Active Substance: HEPARIN SODIUM
  52. AMBIEN [Concomitant]
     Active Substance: ZOLPIDEM TARTRATE
  53. PRIMACOR [Concomitant]
     Active Substance: MILRINONE LACTATE
  54. PRILOSEC [Suspect]
     Active Substance: OMEPRAZOLE MAGNESIUM
     Indication: GASTROOESOPHAGEAL REFLUX DISEASE
     Route: 048
     Dates: start: 1992, end: 2016
  55. PRILOSEC [Suspect]
     Active Substance: OMEPRAZOLE MAGNESIUM
     Indication: GASTROOESOPHAGEAL REFLUX DISEASE
     Dosage: GENERIC
     Route: 065
  56. PRILOSEC OTC [Suspect]
     Active Substance: OMEPRAZOLE MAGNESIUM
     Indication: GASTROOESOPHAGEAL REFLUX DISEASE
     Route: 048
     Dates: start: 2009, end: 2016
  57. ZANTAC [Concomitant]
     Active Substance: RANITIDINE HYDROCHLORIDE
  58. NEOSPORIN [Concomitant]
     Active Substance: BACITRACIN ZINC\NEOMYCIN SULFATE\POLYMYXIN B SULFATE
  59. ARGAN OIL [Concomitant]
     Active Substance: ARGAN OIL
  60. VITAMIN D [Concomitant]
     Active Substance: VITAMIN D NOS
  61. DOCUSATE SODIUM. [Concomitant]
     Active Substance: DOCUSATE SODIUM
  62. CEFEPIME [Concomitant]
     Active Substance: CEFEPIME HYDROCHLORIDE
  63. VANCOCIN [Concomitant]
     Active Substance: VANCOMYCIN HYDROCHLORIDE
  64. MAGNESIUM OXIDE. [Concomitant]
     Active Substance: MAGNESIUM OXIDE
  65. PERCOCET [Concomitant]
     Active Substance: ACETAMINOPHEN\OXYCODONE HYDROCHLORIDE

REACTIONS (3)
  - Renal failure [Unknown]
  - Chronic kidney disease [Not Recovered/Not Resolved]
  - Acute kidney injury [Not Recovered/Not Resolved]

NARRATIVE: CASE EVENT DATE: 20110214
